FAERS Safety Report 5434391-X (Version None)
Quarter: 2007Q3

REPORT INFORMATION
  Report Type: 
  Country: None (occurrence: None)
  Receive Date: 20070831
  Receipt Date: 20070809
  Transmission Date: 20080115
  Serious: No
  Sender: FDA-Public Use
  Company Number: A0662071A

PATIENT
  Age: 47 Year
  Sex: Female

DRUGS (9)
  1. ALLI [Suspect]
     Dates: start: 20070704
  2. ELAVIL [Concomitant]
  3. ALEVE [Concomitant]
  4. IBUPROFEN [Concomitant]
  5. MAXALT [Concomitant]
  6. PROZAC [Concomitant]
  7. LITHIUM CARBONATE [Concomitant]
  8. PEPCID [Concomitant]
  9. MAXALT [Concomitant]
     Indication: HEADACHE

REACTIONS (5)
  - CONSTIPATION [None]
  - FAECES DISCOLOURED [None]
  - HEADACHE [None]
  - PHARMACEUTICAL PRODUCT COMPLAINT [None]
  - STEATORRHOEA [None]
